FAERS Safety Report 8401063-9 (Version None)
Quarter: 2012Q2

REPORT INFORMATION
  Report Type: 
  Country: None (occurrence: None)
  Receive Date: 20120525
  Receipt Date: 20120521
  Transmission Date: 20120825
  Serious: Yes (Hospitalization)
  Sender: FDA-Public Use
  Company Number: 2011SP048209

PATIENT
  Age: 26 Year
  Sex: Female
  Weight: 81.6475 kg

DRUGS (1)
  1. NUVARING [Suspect]
     Indication: CONTRACEPTION
     Dates: start: 20080301, end: 20081015

REACTIONS (10)
  - MULTIPLE INJURIES [None]
  - TRICUSPID VALVE INCOMPETENCE [None]
  - ANAEMIA [None]
  - MUSCLE STRAIN [None]
  - PULMONARY EMBOLISM [None]
  - BACK PAIN [None]
  - URINARY TRACT INFECTION [None]
  - LUNG NEOPLASM [None]
  - DEHYDRATION [None]
  - ATELECTASIS [None]
